FAERS Safety Report 6208142-5 (Version None)
Quarter: 2009Q2

REPORT INFORMATION
  Report Type: 
  Country: None (occurrence: None)
  Receive Date: 20090529
  Receipt Date: 20090520
  Transmission Date: 20091009
  Serious: Yes (Hospitalization)
  Sender: FDA-Public Use
  Company Number: JP-ROCHE-630050

PATIENT
  Sex: Female
  Weight: 3 kg

DRUGS (13)
  1. RIVOTRIL [Suspect]
     Indication: BIPOLAR DISORDER
     Route: 064
     Dates: start: 20050216, end: 20050412
  2. RIVOTRIL [Suspect]
     Route: 064
     Dates: start: 20050413, end: 20060901
  3. RIVOTRIL [Suspect]
     Route: 064
     Dates: start: 20060901, end: 20090326
  4. EURODIN [Suspect]
     Indication: BIPOLAR DISORDER
     Route: 064
     Dates: end: 20090326
  5. CONTOMIN [Suspect]
     Indication: BIPOLAR DISORDER
     Dosage: NOTE: 50MG5100 MG
     Route: 064
  6. WYPAX [Suspect]
     Indication: DRUG USE FOR UNKNOWN INDICATION
     Route: 064
  7. DEPROMEL [Suspect]
     Indication: BIPOLAR DISORDER
     Route: 064
  8. MYSLEE [Suspect]
     Indication: BIPOLAR DISORDER
     Route: 064
  9. HALCION [Suspect]
     Indication: BIPOLAR DISORDER
     Route: 064
  10. RISPERDAL [Suspect]
     Indication: DRUG USE FOR UNKNOWN INDICATION
     Route: 064
  11. MAGLAX [Concomitant]
     Route: 064
  12. ALLEGRA [Concomitant]
     Route: 064
  13. RITODRINE HYDROCHLORIDE [Concomitant]
     Dosage: DRUG REPORTED AS: LUTEONIN
     Route: 064

REACTIONS (2)
  - DRUG WITHDRAWAL SYNDROME NEONATAL [None]
  - NEONATAL ASPHYXIA [None]
